FAERS Safety Report 17546564 (Version 1)
Quarter: 2020Q1

REPORT INFORMATION
  Report Type: Spontaneous
  Country: GR (occurrence: GR)
  Receive Date: 20200316
  Receipt Date: 20200316
  Transmission Date: 20200409
  Serious: Yes (Other)
  Sender: FDA-Public Use
  Company Number: GR-AMGEN-GRCSP2020039754

PATIENT
  Sex: Female

DRUGS (3)
  1. VITAMINE D [Concomitant]
     Active Substance: CHOLECALCIFEROL
     Dosage: 800 INTERNATIONAL UNIT
  2. PROLIA [Suspect]
     Active Substance: DENOSUMAB
     Indication: OSTEOPOROSIS POSTMENOPAUSAL
     Dosage: 60 MILLIGRAM, Q6MO
     Route: 058
  3. CALCIUM [Concomitant]
     Active Substance: CALCIUM
     Dosage: 1000 MILLIGRAM

REACTIONS (3)
  - Cardiovascular disorder [Unknown]
  - Infection [Unknown]
  - Adverse reaction [Unknown]
